FAERS Safety Report 8146522-1 (Version None)
Quarter: 2012Q1

REPORT INFORMATION
  Report Type: 
  Country: None (occurrence: None)
  Receive Date: 20120217
  Receipt Date: 20110718
  Transmission Date: 20120608
  Serious: No
  Sender: FDA-Public Use
  Company Number: US-ABBOTT-11P-163-0840414-00

PATIENT
  Sex: Male
  Weight: 117.59 kg

DRUGS (8)
  1. WARFARIN SODIUM [Concomitant]
     Indication: ANTICOAGULANT THERAPY
  2. ENALAPRIL [Concomitant]
     Indication: HYPERTENSION
  3. COREG [Concomitant]
     Indication: HYPERTENSION
  4. ASPIRIN [Concomitant]
     Indication: PROPHYLAXIS
  5. SPIRONOLACTONE [Concomitant]
     Indication: FLUID RETENTION
  6. ASPIRIN [Concomitant]
     Indication: CARDIAC DISORDER
  7. SIMCOR [Suspect]
     Indication: BLOOD CHOLESTEROL INCREASED
     Dosage: 500/20 MG
     Dates: start: 20110716
  8. LASIX [Concomitant]
     Indication: FLUID RETENTION

REACTIONS (1)
  - DIZZINESS [None]
